FAERS Safety Report 6839234-5 (Version None)
Quarter: 2010Q3

REPORT INFORMATION
  Report Type: 
  Country: None (occurrence: None)
  Receive Date: 20100714
  Receipt Date: 20100705
  Transmission Date: 20110219
  Serious: Yes (Hospitalization)
  Sender: FDA-Public Use
  Company Number: JP-JNJFOC-20100702840

PATIENT
  Age: 40 Year
  Sex: Male

DRUGS (8)
  1. CRAVIT [Suspect]
     Indication: PRODUCT USED FOR UNKNOWN INDICATION
     Route: 048
  2. LOXONIN [Suspect]
     Indication: PRODUCT USED FOR UNKNOWN INDICATION
     Route: 048
  3. AMOXICILLIN TRIHYDRATE [Suspect]
     Indication: PRODUCT USED FOR UNKNOWN INDICATION
     Route: 065
  4. DEPAKENE [Concomitant]
  5. DAI-KENCHU-TO [Concomitant]
  6. GASMOTIN [Concomitant]
  7. OXAROL [Concomitant]
  8. RINDERON-DP [Concomitant]

REACTIONS (3)
  - CONVULSION [None]
  - MOVEMENT DISORDER [None]
  - PAIN [None]
